FAERS Safety Report 6301495-9 (Version None)
Quarter: 2009Q3

REPORT INFORMATION
  Report Type: 
  Country: None (occurrence: None)
  Receive Date: 20090807
  Receipt Date: 20090804
  Transmission Date: 20100115
  Serious: Yes (Hospitalization, Other)
  Sender: FDA-Public Use
  Company Number: B0560682A

PATIENT
  Sex: Male

DRUGS (4)
  1. ZEFIX [Suspect]
     Indication: HEPATIC CIRRHOSIS
     Route: 048
     Dates: start: 20061211
  2. HEPSERA [Concomitant]
     Indication: HEPATIC CIRRHOSIS
     Dosage: 10MG PER DAY
     Route: 048
     Dates: start: 20080825
  3. LIVACT [Concomitant]
     Indication: HEPATIC CIRRHOSIS
     Route: 048
  4. FUROSEMIDE [Concomitant]
     Indication: HEPATIC CIRRHOSIS
     Route: 048

REACTIONS (3)
  - HEPATIC FUNCTION ABNORMAL [None]
  - HEPATIC NEOPLASM MALIGNANT [None]
  - HEPATITIS B DNA INCREASED [None]
